FAERS Safety Report 18274988 (Version 2)
Quarter: 2020Q3

REPORT INFORMATION
  Report Type: Spontaneous
  Country: US (occurrence: US)
  Receive Date: 20200916
  Receipt Date: 20200921
  Transmission Date: 20201103
  Serious: No
  Sender: FDA-Public Use
  Company Number: US-PFIZER INC-2020353216

PATIENT
  Age: 6 Decade
  Sex: Female

DRUGS (1)
  1. PREMPRO [Suspect]
     Active Substance: ESTROGENS, CONJUGATED\MEDROXYPROGESTERONE ACETATE
     Dosage: UNK

REACTIONS (4)
  - Menstrual disorder [Unknown]
  - Hot flush [Unknown]
  - Feeling abnormal [Unknown]
  - Drug ineffective [Unknown]
